FAERS Safety Report 22099546 (Version 1)
Quarter: 2023Q1

REPORT INFORMATION
  Report Type: Spontaneous
  Country: CN (occurrence: CN)
  Receive Date: 20230315
  Receipt Date: 20230315
  Transmission Date: 20230417
  Serious: Yes (Other)
  Sender: FDA-Public Use
  Company Number: CN-JNJFOC-20230321555

PATIENT

DRUGS (2)
  1. TOPAMAX [Suspect]
     Active Substance: TOPIRAMATE
     Indication: Epilepsy
     Route: 048
  2. LEVETIRACETAM [Suspect]
     Active Substance: LEVETIRACETAM
     Indication: Epilepsy
     Route: 048

REACTIONS (9)
  - Brain injury [Unknown]
  - Drug ineffective [Unknown]
  - Decreased appetite [Unknown]
  - Somnolence [Unknown]
  - Asthenia [Unknown]
  - Pyrexia [Unknown]
  - Anger [Unknown]
  - Fatigue [Unknown]
  - Product use issue [Unknown]
